FAERS Safety Report 9171509 (Version 1)
Quarter: 2013Q1

REPORT INFORMATION
  Report Type: Report from Study
  Country: RU (occurrence: RU)
  Receive Date: 20130319
  Receipt Date: 20130319
  Transmission Date: 20140127
  Serious: Yes (Other)
  Sender: FDA-Public Use
  Company Number: RU-ROCHE-1202041

PATIENT
  Age: 26 Year
  Sex: Female

DRUGS (1)
  1. CAPECITABINE [Suspect]
     Indication: METASTATIC GASTRIC CANCER
     Route: 048

REACTIONS (2)
  - Disease progression [Recovered/Resolved]
  - Palmar-plantar erythrodysaesthesia syndrome [Unknown]
